FAERS Safety Report 8822936 (Version 1)
Quarter: 2012Q4

REPORT INFORMATION
  Report Type: 
  Country: ES (occurrence: ES)
  Receive Date: 20121003
  Receipt Date: 20121003
  Transmission Date: 20130627
  Serious: Yes (Other)
  Sender: FDA-Public Use
  Company Number: ES-ELI_LILLY_AND_COMPANY-ES201209007283

PATIENT
  Age: 67 Year
  Sex: Male

DRUGS (6)
  1. EFIENT [Suspect]
     Indication: ACUTE CORONARY SYNDROME
     Dosage: 10 mg, qd
     Dates: start: 20110420, end: 20120414
  2. RANITIDINE [Concomitant]
     Dosage: 300 mg, qd
     Route: 048
     Dates: start: 20110420
  3. CARVEDILOL [Concomitant]
     Dosage: 25 mg, bid
     Dates: start: 20110420
  4. ENALAPRIL [Concomitant]
     Dosage: 5 mg, qd
     Route: 048
     Dates: start: 20110420
  5. ATORVASTATIN [Concomitant]
     Dosage: 40 mg, qd
     Route: 048
     Dates: start: 20110520
  6. ADIRO [Concomitant]
     Dosage: 100 mg, qd
     Route: 048
     Dates: start: 20110420

REACTIONS (3)
  - Eczema [Recovered/Resolved]
  - Lip swelling [Recovered/Resolved]
  - Swelling [Recovered/Resolved]
